FAERS Safety Report 4824319-5 (Version None)
Quarter: 2005Q4

REPORT INFORMATION
  Report Type: 
  Country: None (occurrence: None)
  Receive Date: 20051109
  Receipt Date: 20051104
  Transmission Date: 20060501
  Serious: Yes (Hospitalization)
  Sender: FDA-Public Use
  Company Number: US-MERCK-0511USA00700

PATIENT
  Age: 44 Year
  Sex: Male

DRUGS (6)
  1. VIOXX [Suspect]
     Route: 048
     Dates: start: 20010901, end: 20041007
  2. STUDY DRUG (UNSPECIFIED) [Suspect]
     Route: 065
     Dates: start: 20041108, end: 20041117
  3. STUDY DRUG (UNSPECIFIED) [Suspect]
     Route: 065
     Dates: start: 20041120
  4. BEXTRA [Suspect]
     Route: 065
  5. VITAMINS (UNSPECIFIED) [Concomitant]
     Route: 065
  6. MAGNESIUM (UNSPECIFIED) [Concomitant]
     Route: 065

REACTIONS (5)
  - BLOOD PRESSURE INCREASED [None]
  - ELECTROCARDIOGRAM ST SEGMENT DEPRESSION [None]
  - FIBROMYALGIA [None]
  - HEART RATE INCREASED [None]
  - HEART RATE IRREGULAR [None]
